FAERS Safety Report 7230767-9 (Version None)
Quarter: 2011Q1

REPORT INFORMATION
  Report Type: 
  Country: None (occurrence: None)
  Receive Date: 20110105
  Receipt Date: 20101221
  Transmission Date: 20110831
  Serious: Yes (Hospitalization, Disabling, Congenital Anomaly)
  Sender: FDA-Public Use
  Company Number: 1000017906

PATIENT
  Sex: Male
  Weight: 4.73 kg

DRUGS (3)
  1. ESCITALOPRAM OXALATE [Suspect]
     Dosage: 40 MG (40 MG, 1 IN 1 D), TRANSPLACENTAL
     Route: 064
     Dates: end: 20101007
  2. ZYPREXA [Suspect]
     Dosage: 1 DOSAGE FORM (1 DOSAGE FORMS, 1 IN 1 D), TRANSPLACENTAL
     Route: 064
     Dates: end: 20101007
  3. DEPAKOTE [Suspect]
     Dosage: 1 DOSAGE FORM (1 DOSAGE FORMS, 1 IN 1 D), TRANSPLACENTAL
     Route: 064
     Dates: end: 20101007

REACTIONS (8)
  - TOXICITY TO VARIOUS AGENTS [None]
  - DRUG WITHDRAWAL SYNDROME [None]
  - MATERNAL DRUGS AFFECTING FOETUS [None]
  - TALIPES [None]
  - SEROTONIN SYNDROME [None]
  - DISABILITY [None]
  - OVERDOSE [None]
  - MACROSOMIA [None]
